FAERS Safety Report 21504764 (Version 2)
Quarter: 2025Q2

REPORT INFORMATION
  Report Type: Spontaneous
  Country: CA (occurrence: CA)
  Receive Date: 20221025
  Receipt Date: 20250417
  Transmission Date: 20250716
  Serious: Yes (Other)
  Sender: ANI
  Company Number: CA-ANIPHARMA-2022-CA-002094

PATIENT
  Age: 53 Year
  Sex: Male
  Weight: 72 kg

DRUGS (12)
  1. CANDESARTAN CILEXETIL [Suspect]
     Active Substance: CANDESARTAN CILEXETIL
     Indication: Product used for unknown indication
     Route: 048
  2. ASPIRIN [Concomitant]
     Active Substance: ASPIRIN
     Route: 048
     Dates: start: 20210918
  3. ASCORBIC ACID [Concomitant]
     Active Substance: ASCORBIC ACID
  4. TICAGRELOR [Suspect]
     Active Substance: TICAGRELOR
  5. METOPROLOL TARTRATE [Suspect]
     Active Substance: METOPROLOL TARTRATE
     Route: 065
  6. RAMIPRIL [Suspect]
     Active Substance: RAMIPRIL
     Route: 048
  7. ROSUVASTATIN [Suspect]
     Active Substance: ROSUVASTATIN
     Route: 048
  8. BRILINTA [Suspect]
     Active Substance: TICAGRELOR
     Route: 048
  9. ATORVASTATIN CALCIUM [Suspect]
     Active Substance: ATORVASTATIN CALCIUM
     Route: 065
  10. AVAPRO [Suspect]
     Active Substance: IRBESARTAN
     Route: 065
  11. DULOXETINE HYDROCHLORIDE [Suspect]
     Active Substance: DULOXETINE HYDROCHLORIDE
     Route: 048
  12. PRAVASTATIN SODIUM [Suspect]
     Active Substance: PRAVASTATIN SODIUM
     Route: 048
     Dates: start: 20210918

REACTIONS (7)
  - Angina pectoris [Unknown]
  - Blood urine present [Unknown]
  - Disturbance in attention [Unknown]
  - Gait disturbance [Unknown]
  - Loss of control of legs [Unknown]
  - Pain in extremity [Unknown]
  - Cough [Unknown]

NARRATIVE: CASE EVENT DATE: 20210918
